FAERS Safety Report 23690314 (Version 3)
Quarter: 2024Q3

REPORT INFORMATION
  Report Type: Spontaneous
  Country: JP (occurrence: JP)
  Receive Date: 20240401
  Receipt Date: 20240719
  Transmission Date: 20241017
  Serious: Yes (Hospitalization, Other)
  Sender: NEUROCRINE BIOSCIENCES
  Company Number: JP-NEUROCRINE BIOSCIENCES INC.-2024NBI00785

PATIENT
  Age: 58 Year
  Sex: Female

DRUGS (11)
  1. VALBENAZINE [Suspect]
     Active Substance: VALBENAZINE
     Indication: Tardive dyskinesia
     Dosage: 40 MILLIGRAM, QD
     Route: 048
     Dates: start: 20240122, end: 20240207
  2. BROMAZEPAM [Concomitant]
     Active Substance: BROMAZEPAM
     Indication: Anxiety
     Dosage: UNK
     Dates: start: 20221205
  3. BROMAZEPAM [Concomitant]
     Active Substance: BROMAZEPAM
     Indication: Tension
  4. AKINETON [Concomitant]
     Active Substance: BIPERIDEN HYDROCHLORIDE
     Indication: Restlessness
     Dosage: UNK
     Dates: start: 20240106, end: 20240129
  5. RISPERIDONE [Concomitant]
     Active Substance: RISPERIDONE
     Indication: Delusion
     Dosage: UNK
     Dates: start: 20231219
  6. RISPERIDONE [Concomitant]
     Active Substance: RISPERIDONE
     Indication: Hallucination
  7. FLUNITRAZEPAM [Concomitant]
     Active Substance: FLUNITRAZEPAM
     Dosage: UNK
     Dates: start: 20221205
  8. HALCION [Concomitant]
     Active Substance: TRIAZOLAM
     Indication: Insomnia
     Dosage: UNK
     Dates: start: 20221205
  9. MEMANTINE HYDROCHLORIDE [Concomitant]
     Active Substance: MEMANTINE HYDROCHLORIDE
     Indication: Memory impairment
     Dosage: UNK
     Dates: start: 20240106, end: 20240129
  10. MEMANTINE HYDROCHLORIDE [Concomitant]
     Active Substance: MEMANTINE HYDROCHLORIDE
     Indication: Aphasia
  11. MEMANTINE HYDROCHLORIDE [Concomitant]
     Active Substance: MEMANTINE HYDROCHLORIDE
     Indication: Apraxia

REACTIONS (2)
  - Depression [Recovered/Resolved]
  - Muscle rigidity [Recovered/Resolved]

NARRATIVE: CASE EVENT DATE: 20240124
